FAERS Safety Report 21742249 (Version 1)
Quarter: 2022Q4

REPORT INFORMATION
  Report Type: Spontaneous
  Country: US (occurrence: US)
  Receive Date: 20221216
  Receipt Date: 20221216
  Transmission Date: 20230113
  Serious: No
  Sender: FDA-Public Use
  Company Number: US-GE HEALTHCARE-2022CSU008604

PATIENT

DRUGS (4)
  1. GADOLINIUM [Suspect]
     Active Substance: GADOLINIUM
     Indication: Magnetic resonance imaging head
     Dosage: UNK UNK, SINGLE
     Route: 065
  2. GADOLINIUM [Suspect]
     Active Substance: GADOLINIUM
     Indication: Magnetic resonance imaging abdominal
  3. GADOLINIUM [Suspect]
     Active Substance: GADOLINIUM
     Indication: Von Hippel-Lindau disease
  4. GADOLINIUM [Suspect]
     Active Substance: GADOLINIUM
     Indication: Neoplasm

REACTIONS (1)
  - Magnetic resonance imaging head abnormal [Unknown]
